FAERS Safety Report 6286472-9 (Version None)
Quarter: 2009Q3

REPORT INFORMATION
  Report Type: 
  Country: None (occurrence: None)
  Receive Date: 20090728
  Receipt Date: 20090723
  Transmission Date: 20100115
  Serious: Yes (Other)
  Sender: FDA-Public Use
  Company Number: B0585343A

PATIENT
  Sex: Male

DRUGS (8)
  1. AUGMENTIN '125' [Suspect]
     Dosage: 1G SINGLE DOSE
     Route: 048
     Dates: start: 20090708, end: 20090708
  2. TRILEPTAL [Suspect]
     Dosage: 300MG SINGLE DOSE
     Route: 048
     Dates: start: 20090708, end: 20090708
  3. URBANYL [Suspect]
     Dosage: 10MG SINGLE DOSE
     Route: 048
     Dates: start: 20090708, end: 20090708
  4. ATARAX [Suspect]
     Dosage: 25MG SINGLE DOSE
     Route: 048
     Dates: start: 20090708, end: 20090708
  5. RISPERDAL [Suspect]
     Dosage: 3MG SINGLE DOSE
     Route: 048
     Dates: start: 20090708, end: 20090708
  6. MOPRAL [Suspect]
     Route: 048
     Dates: start: 20090708, end: 20090708
  7. LAMICTAL [Concomitant]
     Indication: DRUG USE FOR UNKNOWN INDICATION
     Route: 065
  8. DEPAKENE [Concomitant]
     Indication: DRUG USE FOR UNKNOWN INDICATION
     Route: 065

REACTIONS (7)
  - HYPOTENSION [None]
  - HYPOTHERMIA [None]
  - MEDICATION ERROR [None]
  - POTENTIATING DRUG INTERACTION [None]
  - SEDATION [None]
  - SOMNOLENCE [None]
  - WRONG DRUG ADMINISTERED [None]
